FAERS Safety Report 6429653-3 (Version None)
Quarter: 2009Q4

REPORT INFORMATION
  Report Type: 
  Country: None (occurrence: None)
  Receive Date: 20091106
  Receipt Date: 20091030
  Transmission Date: 20100525
  Serious: Yes (Other)
  Sender: FDA-Public Use
  Company Number: US-ASTRAZENECA-2009UW18576

PATIENT
  Age: 48 Year
  Sex: Female
  Weight: 115.2 kg

DRUGS (5)
  1. SEROQUEL [Suspect]
     Indication: SLEEP DISORDER
     Route: 048
     Dates: start: 19990101, end: 20050101
  2. SEROQUEL [Suspect]
     Indication: DEPRESSION
     Route: 048
     Dates: start: 19990101, end: 20050101
  3. SEROQUEL [Suspect]
     Indication: BIPOLAR DISORDER
     Route: 048
     Dates: start: 19990101, end: 20050101
  4. RISPERDAL [Concomitant]
     Dates: start: 19990101, end: 20000101
  5. ZOLOFT [Concomitant]
     Dates: start: 19990101, end: 20050101

REACTIONS (4)
  - CORONARY ARTERY BYPASS [None]
  - RENAL INJURY [None]
  - SURGERY [None]
  - TYPE 2 DIABETES MELLITUS [None]
